FAERS Safety Report 6447720-5 (Version None)
Quarter: 2009Q4

REPORT INFORMATION
  Report Type: 
  Country: None (occurrence: None)
  Receive Date: 20091120
  Receipt Date: 20091112
  Transmission Date: 20100525
  Serious: Yes (Hospitalization)
  Sender: FDA-Public Use
  Company Number: US-BIOGENIDEC-2009BI037232

PATIENT
  Age: 59 Year
  Sex: Female

DRUGS (4)
  1. TYSABRI [Suspect]
     Indication: MULTIPLE SCLEROSIS
     Route: 042
     Dates: start: 20060922, end: 20071219
  2. TYSABRI [Suspect]
     Route: 042
     Dates: start: 20090916
  3. AVONEX [Concomitant]
     Indication: MULTIPLE SCLEROSIS
     Route: 030
  4. LYRICA [Concomitant]
     Indication: FACIAL NEURALGIA

REACTIONS (7)
  - CONFUSIONAL STATE [None]
  - DIABETES MELLITUS [None]
  - FACIAL NEURALGIA [None]
  - MEMORY IMPAIRMENT [None]
  - NEURALGIA [None]
  - OPTIC NEURITIS [None]
  - WEIGHT DECREASED [None]
